FAERS Safety Report 10366684 (Version 7)
Quarter: 2015Q3

REPORT INFORMATION
  Report Type: Report from Study
  Country: BE (occurrence: BE)
  Receive Date: 20140806
  Receipt Date: 20150714
  Transmission Date: 20151125
  Serious: Yes (Hospitalization)
  Sender: FDA-Public Use
  Company Number: BE-009507513-1406BEL001435

PATIENT
  Age: 69 Year
  Sex: Male
  Weight: 108 kg

DRUGS (15)
  1. BLINDED MK-3102 [Suspect]
     Active Substance: OMARIGLIPTIN
     Indication: TYPE 2 DIABETES MELLITUS
     Dosage: UNK
     Route: 048
     Dates: start: 20140313, end: 20140522
  2. FUROSEMIDE. [Suspect]
     Active Substance: FUROSEMIDE
     Indication: ISCHAEMIC CARDIOMYOPATHY
     Dosage: 40MG DAILY DOSE, QD
     Route: 048
     Dates: start: 201203, end: 20140521
  3. HUMALOG MIX50/50 [Concomitant]
     Active Substance: INSULIN LISPRO
     Dosage: 26 UNITS DAILY DOSE, QD, STRENGTH: 26 U
     Route: 058
     Dates: start: 201203
  4. HUMALOG MIX50/50 [Concomitant]
     Active Substance: INSULIN LISPRO
     Dosage: 18 UNITS DAILY DOSE, QD, STRENGTH: 18 U
     Route: 058
     Dates: start: 201203, end: 20140606
  5. EMCONCOR MITIS [Concomitant]
     Indication: MYOCARDIAL INFARCTION
     Dosage: 2.5MG DAILY DOSE, QD
     Route: 048
     Dates: start: 201203
  6. CORDARONE [Concomitant]
     Active Substance: AMIODARONE HYDROCHLORIDE
     Indication: MYOCARDIAL INFARCTION
     Dosage: 200 MG, QD
     Route: 048
     Dates: start: 201203
  7. HUMALOG MIX50/50 [Concomitant]
     Active Substance: INSULIN LISPRO
     Indication: DIABETES MELLITUS
     Dosage: 13 UNITS DAILY DOSE, QD, STRENGTH: 13 U
     Route: 058
     Dates: start: 201203
  8. SERETIDE [Concomitant]
     Active Substance: FLUTICASONE FUROATE\SALMETEROL XINAFOATE
     Indication: CHRONIC OBSTRUCTIVE PULMONARY DISEASE
     Dosage: 50.5 UG DAILY DOSE, BID, FORMULATION: AEROSOL
     Route: 055
     Dates: start: 200705
  9. ONBREZ [Concomitant]
     Active Substance: INDACATEROL
     Indication: CHRONIC OBSTRUCTIVE PULMONARY DISEASE
     Dosage: 150MICROGRAM DAILY DOSE, QD, FORMULATION: AEROSOL
     Route: 055
     Dates: start: 200705
  10. SODIUM CHLORIDE. [Concomitant]
     Active Substance: SODIUM CHLORIDE
     Indication: HYPONATRAEMIA
     Dosage: UNK, NACL PERFUSION
     Dates: start: 201405, end: 201406
  11. COVERSYL (PERINDOPRIL ERBUMINE) [Concomitant]
     Active Substance: PERINDOPRIL
     Indication: HYPERTENSION
     Dosage: 5 MG, QD
     Route: 048
     Dates: start: 201203, end: 20140708
  12. DAONIL [Concomitant]
     Active Substance: GLYBURIDE
     Indication: DIABETES MELLITUS
     Dosage: 5 MG, BID
     Route: 048
     Dates: start: 201203, end: 20140521
  13. SIMVASTATIN. [Concomitant]
     Active Substance: SIMVASTATIN
     Indication: HYPERCHOLESTEROLAEMIA
     Dosage: 40 MG, QD
     Route: 048
     Dates: start: 201203
  14. ASAFLOW [Concomitant]
     Active Substance: ASPIRIN
     Indication: CARDIOVASCULAR EVENT PROPHYLAXIS
     Dosage: 80MG DAILY DOSE, QD
     Route: 048
     Dates: start: 201203
  15. DUOVENT [Concomitant]
     Active Substance: FENOTEROL HYDROBROMIDE
     Indication: CHRONIC OBSTRUCTIVE PULMONARY DISEASE
     Dosage: 200 MICROGRAM DAILY DOSE, QID, FORMULATION: AEROSOL
     Route: 055
     Dates: start: 200705

REACTIONS (1)
  - Altered state of consciousness [Recovered/Resolved]

NARRATIVE: CASE EVENT DATE: 20140517
